FAERS Safety Report 8622543-7 (Version None)
Quarter: 2012Q3

REPORT INFORMATION
  Report Type: 
  Country: None (occurrence: None)
  Receive Date: 20120827
  Receipt Date: 20120824
  Transmission Date: 20120928
  Serious: Yes (Hospitalization, Other)
  Sender: FDA-Public Use
  Company Number: US-PFIZER INC-2012191191

PATIENT
  Age: 52 Year
  Sex: Female
  Weight: 53 kg

DRUGS (6)
  1. NEURONTIN [Suspect]
     Indication: NEUROPATHY PERIPHERAL
     Dosage: UNK, 1X/DAY
     Route: 048
     Dates: start: 20110116, end: 20110119
  2. PREDNISONE [Concomitant]
     Dosage: 5 MG, 1X/DAY
  3. CALAN - SLOW RELEASE [Concomitant]
     Indication: HYPERTENSION
     Dosage: 120 MG, 2X/DAY
  4. CYCLOSPORINE [Concomitant]
     Indication: PROPHYLAXIS AGAINST TRANSPLANT REJECTION
     Dosage: UNK
  5. SIMVASTATIN [Concomitant]
     Indication: BLOOD CHOLESTEROL INCREASED
     Dosage: 40 MG, 1X/DAY
  6. EDECRIN [Concomitant]
     Dosage: 50 MG, 1X/DAY

REACTIONS (7)
  - VISION BLURRED [None]
  - ACTIVITIES OF DAILY LIVING IMPAIRED [None]
  - DYSARTHRIA [None]
  - MUSCULAR WEAKNESS [None]
  - CEREBROVASCULAR ACCIDENT [None]
  - WEIGHT DECREASED [None]
  - MUSCULOSKELETAL DISORDER [None]
